FAERS Safety Report 4384712-4 (Version None)
Quarter: 2004Q2

REPORT INFORMATION
  Report Type: 
  Country: None (occurrence: None)
  Receive Date: 20040621
  Receipt Date: 20040604
  Transmission Date: 20050107
  Serious: Yes (Hospitalization)
  Sender: FDA-Public Use
  Company Number: 2004AP03064

PATIENT
  Age: 74 Year
  Sex: Male

DRUGS (8)
  1. CASODEX [Suspect]
     Indication: PROSTATE CANCER
     Dosage: 80 MG DAILY PO
     Route: 048
     Dates: start: 20030601, end: 20040524
  2. LASIX [Concomitant]
  3. ZYLORIC ^FAES^ [Concomitant]
  4. ADALAT [Concomitant]
  5. SUNRYTHM [Concomitant]
  6. VASOLAN [Concomitant]
  7. K SR [Concomitant]
  8. LEUPROLIDE ACETATE [Concomitant]

REACTIONS (2)
  - ANAEMIA [None]
  - THROMBOCYTOPENIA [None]
